FAERS Safety Report 8943672 (Version 1)
Quarter: 2012Q4

REPORT INFORMATION
  Report Type: 
  Country: US (occurrence: US)
  Receive Date: 20121204
  Receipt Date: 20121204
  Transmission Date: 20130627
  Serious: Yes (Other)
  Sender: FDA-Public Use
  Company Number: US-BAYER-2012-126657

PATIENT
  Age: 71 Year
  Sex: Male

DRUGS (3)
  1. BAYER GENUINE ASPIRIN ORIGINAL STRENGTH [Suspect]
  2. PLAVIX [Interacting]
     Route: 048
  3. DIPYRIDAMOLE [Interacting]

REACTIONS (1)
  - Gastric haemorrhage [None]
